FAERS Safety Report 4301707-7 (Version None)
Quarter: 2004Q1

REPORT INFORMATION
  Report Type: 
  Country: None (occurrence: None)
  Receive Date: 20040219
  Receipt Date: 20040206
  Transmission Date: 20041129
  Serious: Yes (Death, Other)
  Sender: FDA-Public Use
  Company Number: NSADSS2002008616

PATIENT
  Age: 25 Year
  Sex: Female

DRUGS (1)
  1. REMICADE [Suspect]
     Dosage: 1 IN 1 AS NECESSARY, INTRAVENOUS
     Route: 042

REACTIONS (3)
  - ALOPECIA [None]
  - HEART RATE ABNORMAL [None]
  - INFUSION SITE RASH [None]
